FAERS Safety Report 16809489 (Version 1)
Quarter: 2019Q4

REPORT INFORMATION
  Report Type: Spontaneous
  Country: US (occurrence: US)
  Receive Date: 20190915
  Receipt Date: 20190915
  Transmission Date: 20200122
  Serious: Yes (Death)
  Sender: FDA-Public Use
  Company Number: None

PATIENT
  Age: 79 Year
  Sex: Female
  Weight: 58.5 kg

DRUGS (4)
  1. HYDROTHORACLIAZIDE [Concomitant]
  2. LEVOXIN [Concomitant]
     Active Substance: LEVOFLOXACIN
  3. MULTI VITAMIN [Concomitant]
     Active Substance: VITAMINS
  4. ZANTAC [Suspect]
     Active Substance: RANITIDINE HYDROCHLORIDE
     Indication: GASTROOESOPHAGEAL REFLUX DISEASE
     Dosage: ?          QUANTITY:1 TABLET(S);?
     Route: 048

REACTIONS (1)
  - Gallbladder cancer [None]

NARRATIVE: CASE EVENT DATE: 20181224
